FAERS Safety Report 18594630 (Version 1)
Quarter: 2020Q4

REPORT INFORMATION
  Report Type: Spontaneous
  Country: US (occurrence: US)
  Receive Date: 20201208
  Receipt Date: 20201208
  Transmission Date: 20210114
  Serious: No
  Sender: FDA-Public Use
  Company Number: None

PATIENT
  Age: 68 Year
  Sex: Female
  Weight: 54 kg

DRUGS (2)
  1. LATANOPROST. [Concomitant]
     Active Substance: LATANOPROST
     Dates: start: 20201022, end: 20201208
  2. LATANOPROST. [Suspect]
     Active Substance: LATANOPROST
     Route: 047

REACTIONS (2)
  - Eye irritation [None]
  - Ocular hyperaemia [None]

NARRATIVE: CASE EVENT DATE: 20201208
